FAERS Safety Report 4677782-7 (Version None)
Quarter: 2005Q2

REPORT INFORMATION
  Report Type: 
  Country: None (occurrence: None)
  Receive Date: 20050531
  Receipt Date: 20050520
  Transmission Date: 20051028
  Serious: Yes (Hospitalization)
  Sender: FDA-Public Use
  Company Number: US-JNJFOC-20050301532

PATIENT
  Sex: Male

DRUGS (7)
  1. FENTANYL [Suspect]
     Route: 062
  2. CHLORCON [Concomitant]
  3. FUROSEMIDE [Concomitant]
  4. VICODIN [Concomitant]
  5. VICODIN [Concomitant]
     Indication: PAIN
     Dosage: 5/500 MG, ONE EVERY 6 HOURS AS NEEDED.
  6. PREDNISONE TAB [Concomitant]
  7. RANITIDINE [Concomitant]

REACTIONS (9)
  - ABNORMAL BEHAVIOUR [None]
  - ANOREXIA [None]
  - COMA [None]
  - CONVULSION [None]
  - LETHARGY [None]
  - MYDRIASIS [None]
  - OVERDOSE [None]
  - PALLOR [None]
  - SOMNOLENCE [None]
